FAERS Safety Report 10367951 (Version 2)
Quarter: 2014Q4

REPORT INFORMATION
  Report Type: Spontaneous
  Country: CH (occurrence: None)
  Receive Date: 20140805
  Receipt Date: 20141014
  Transmission Date: 20150528
  Serious: Yes (Other)
  Sender: FDA-Public Use
  Company Number: 20140440

PATIENT
  Age: 26 Year
  Sex: Female

DRUGS (1)
  1. FERINJECT [Suspect]
     Active Substance: FERRIC CARBOXYMALTOSE
     Indication: ANAEMIA
     Dosage: 1 IN 1 WEEK INTRAVENOUS.
     Route: 041
     Dates: start: 20140610, end: 20140618

REACTIONS (2)
  - Exposure during pregnancy [None]
  - Serum ferritin increased [None]

NARRATIVE: CASE EVENT DATE: 20140703
